FAERS Safety Report 14267341 (Version 1)
Quarter: 2017Q4

REPORT INFORMATION
  Report Type: Spontaneous
  Country: US (occurrence: US)
  Receive Date: 20171208
  Receipt Date: 20171208
  Transmission Date: 20180321
  Serious: Yes (Other)
  Sender: FDA-Public Use
  Company Number: None

PATIENT
  Age: 48 Year
  Sex: Female
  Weight: 111.6 kg

DRUGS (1)
  1. JARDIANCE [Suspect]
     Active Substance: EMPAGLIFLOZIN
     Indication: DIABETES MELLITUS
     Route: 048
     Dates: start: 20170223, end: 20170803

REACTIONS (5)
  - Angioedema [None]
  - Therapy cessation [None]
  - Lip swelling [None]
  - Peripheral swelling [None]
  - Eye swelling [None]

NARRATIVE: CASE EVENT DATE: 20170803
